FAERS Safety Report 26108581 (Version 1)
Quarter: 2025Q4

REPORT INFORMATION
  Report Type: Spontaneous
  Country: EU (occurrence: EU)
  Receive Date: 20251201
  Receipt Date: 20251201
  Transmission Date: 20260117
  Serious: Yes (Death, Hospitalization)
  Sender: NOVO NORDISK
  Company Number: EU-DCGMA-25206082

PATIENT
  Age: 44 Year
  Sex: Female

DRUGS (1)
  1. OZEMPIC [Suspect]
     Active Substance: SEMAGLUTIDE
     Indication: Product used for unknown indication
     Dosage: UNK

REACTIONS (7)
  - Cardiac arrest [Fatal]
  - Circulatory collapse [Fatal]
  - Acute myocardial infarction [Fatal]
  - Resuscitation [Fatal]
  - Ventricular fibrillation [Fatal]
  - Lactic acidosis [Fatal]
  - Disseminated intravascular coagulation [Fatal]

NARRATIVE: CASE EVENT DATE: 20250831
